FAERS Safety Report 25825985 (Version 1)
Quarter: 2025Q3

REPORT INFORMATION
  Report Type: Spontaneous
  Country: EU (occurrence: EU)
  Receive Date: 20250919
  Receipt Date: 20250919
  Transmission Date: 20251021
  Serious: Yes (Hospitalization, Other)
  Sender: VERTEX
  Company Number: None

PATIENT
  Age: 10 Year
  Sex: Male
  Weight: 27 kg

DRUGS (4)
  1. ELEXACAFTOR\IVACAFTOR\TEZACAFTOR [Suspect]
     Active Substance: ELEXACAFTOR\IVACAFTOR\TEZACAFTOR
     Indication: Cystic fibrosis
     Dosage: 37.5MG IVA/25MG TEZA/50MG ELEXA; 2 TABS IN AM
     Route: 048
     Dates: start: 20221012, end: 20230921
  2. ELEXACAFTOR\IVACAFTOR\TEZACAFTOR [Suspect]
     Active Substance: ELEXACAFTOR\IVACAFTOR\TEZACAFTOR
     Dosage: REDUCED - 37.5MG IVA/25MG TEZA/50MG ELEXA; 1 TAB IN AM
     Route: 048
     Dates: start: 20230921, end: 20240527
  3. ELEXACAFTOR\IVACAFTOR\TEZACAFTOR [Suspect]
     Active Substance: ELEXACAFTOR\IVACAFTOR\TEZACAFTOR
     Dosage: 37.5MG IVA/25MG TEZA/50MG ELEXA; 2 TABS IN AM
     Route: 048
     Dates: start: 20240527
  4. KALYDECO [Suspect]
     Active Substance: IVACAFTOR
     Indication: Cystic fibrosis
     Dosage: 75 MG IVA; 1 TAB IN PM
     Route: 048
     Dates: start: 20221012

REACTIONS (2)
  - Seizure [Recovered/Resolved]
  - Brain oedema [Unknown]

NARRATIVE: CASE EVENT DATE: 20250827
